FAERS Safety Report 4842970-3 (Version None)
Quarter: 2005Q4

REPORT INFORMATION
  Report Type: 
  Country: None (occurrence: None)
  Receive Date: 20051201
  Receipt Date: 20051122
  Transmission Date: 20060501
  Serious: Yes (Death)
  Sender: FDA-Public Use
  Company Number: DE-SANOFI-SYNTHELABO-A04200501010

PATIENT
  Sex: Female

DRUGS (3)
  1. ELOXATIN [Suspect]
     Indication: COLON CANCER
     Route: 041
     Dates: start: 20051101, end: 20051101
  2. FLUOROURACIL [Concomitant]
     Indication: COLON CANCER
     Route: 041
     Dates: start: 20051101, end: 20051101
  3. FOLINIC ACID [Concomitant]
     Indication: COLON CANCER
     Route: 041
     Dates: start: 20051101, end: 20051101

REACTIONS (1)
  - DEATH [None]
